FAERS Safety Report 7353022-5 (Version None)
Quarter: 2011Q1

REPORT INFORMATION
  Report Type: 
  Country: None (occurrence: None)
  Receive Date: 20110315
  Receipt Date: 20110310
  Transmission Date: 20110831
  Serious: Yes (Other)
  Sender: FDA-Public Use
  Company Number: A0916794A

PATIENT
  Age: 36 Year
  Sex: Female

DRUGS (6)
  1. RETROVIR [Concomitant]
     Dosage: 1MGKH SINGLE DOSE
     Route: 042
     Dates: start: 20110208, end: 20110208
  2. RETROVIR [Concomitant]
     Indication: ANTIRETROVIRAL THERAPY
     Dosage: 2MGKH SINGLE DOSE
     Route: 042
     Dates: start: 20110208, end: 20110208
  3. COCAINE [Concomitant]
  4. COMBIVIR [Suspect]
     Indication: ANTIRETROVIRAL THERAPY
     Dosage: 2TAB PER DAY
     Route: 048
     Dates: start: 20101119
  5. METHADONE [Concomitant]
  6. KALETRA [Suspect]
     Indication: ANTIVIRAL TREATMENT
     Dosage: 4TAB PER DAY
     Route: 048
     Dates: start: 20101119

REACTIONS (6)
  - CHORIOAMNIONITIS [None]
  - PREMATURE RUPTURE OF MEMBRANES [None]
  - DRUG EXPOSURE DURING PREGNANCY [None]
  - LIVE BIRTH [None]
  - FOETAL HEART RATE DECELERATION [None]
  - PREMATURE BABY [None]
